FAERS Safety Report 24143260 (Version 3)
Quarter: 2024Q4

REPORT INFORMATION
  Report Type: Spontaneous
  Country: HR (occurrence: HR)
  Receive Date: 20240726
  Receipt Date: 20241224
  Transmission Date: 20250114
  Serious: Yes (Congenital Anomaly, Other)
  Sender: ABBVIE
  Company Number: HR-ABBVIE-5848602

PATIENT
  Sex: Female

DRUGS (1)
  1. RINVOQ [Suspect]
     Active Substance: UPADACITINIB
     Indication: Maternal exposure timing unspecified
     Route: 064

REACTIONS (4)
  - Ultrasound antenatal screen abnormal [Unknown]
  - Premature baby [Unknown]
  - Prenatal screening test abnormal [Unknown]
  - Foetal exposure during pregnancy [Unknown]
